FAERS Safety Report 5174545-3 (Version None)
Quarter: 2006Q4

REPORT INFORMATION
  Report Type: 
  Country: None (occurrence: None)
  Receive Date: 20061214
  Receipt Date: 20060605
  Transmission Date: 20070319
  Serious: No
  Sender: FDA-Public Use
  Company Number: US-AMGEN-KDL181886

PATIENT
  Sex: Female
  Weight: 55.4 kg

DRUGS (4)
  1. ENBREL [Suspect]
     Indication: RHEUMATOID ARTHRITIS
     Route: 058
     Dates: start: 20020101, end: 20051101
  2. FLONASE [Concomitant]
  3. TYLENOL [Concomitant]
  4. ENTEX CAP [Concomitant]

REACTIONS (2)
  - GAMMOPATHY [None]
  - IMPAIRED GASTRIC EMPTYING [None]
